FAERS Safety Report 23380980 (Version 1)
Quarter: 2024Q1

REPORT INFORMATION
  Report Type: Spontaneous
  Country: CN (occurrence: None)
  Receive Date: 20240109
  Receipt Date: 20240109
  Transmission Date: 20240410
  Serious: Yes (Other)
  Sender: FDA-Public Use
  Company Number: CN-ROCHE-3487398

PATIENT
  Age: 53 Year
  Sex: Female

DRUGS (8)
  1. PERJETA [Suspect]
     Active Substance: PERTUZUMAB
     Indication: Chemotherapy
     Route: 041
     Dates: start: 20231129, end: 20231129
  2. PERJETA [Suspect]
     Active Substance: PERTUZUMAB
     Indication: Neoplasm malignant
  3. HERCEPTIN [Suspect]
     Active Substance: TRASTUZUMAB
     Indication: Chemotherapy
     Route: 041
     Dates: start: 20231129, end: 20231129
  4. HERCEPTIN [Suspect]
     Active Substance: TRASTUZUMAB
     Indication: Neoplasm malignant
  5. CARBOPLATIN [Suspect]
     Active Substance: CARBOPLATIN
     Indication: Chemotherapy
     Route: 041
     Dates: start: 20231130, end: 20231130
  6. CARBOPLATIN [Suspect]
     Active Substance: CARBOPLATIN
     Indication: Neoplasm malignant
  7. DOCETAXEL [Suspect]
     Active Substance: DOCETAXEL\DOCETAXEL ANHYDROUS
     Indication: Chemotherapy
     Route: 041
     Dates: start: 20231130, end: 20231130
  8. DOCETAXEL [Suspect]
     Active Substance: DOCETAXEL\DOCETAXEL ANHYDROUS
     Indication: Neoplasm malignant

REACTIONS (1)
  - Myelosuppression [Recovering/Resolving]

NARRATIVE: CASE EVENT DATE: 20231207
